FAERS Safety Report 4910032-2 (Version None)
Quarter: 2006Q1

REPORT INFORMATION
  Report Type: 
  Country: None (occurrence: None)
  Receive Date: 20060208
  Receipt Date: 20060127
  Transmission Date: 20060701
  Serious: Yes (Hospitalization)
  Sender: FDA-Public Use
  Company Number: 200610106BFR

PATIENT
  Age: 54 Year
  Sex: Male
  Weight: 93 kg

DRUGS (13)
  1. TRASYLOL [Suspect]
     Indication: AORTIC DISSECTION
     Dosage: 3.5 MIU, TOTAL DAILY, INTRAVENOUS
     Route: 042
     Dates: start: 20060110
  2. CEFUROXIME [Suspect]
     Indication: AORTIC DISSECTION
     Dosage: 3000 MG, TOTAL DAILY, INTRAVENOUS
     Route: 042
     Dates: start: 20060110
  3. CLOTTAGEN           (FIBRINOGEN) [Suspect]
     Indication: AORTIC DISSECTION
     Dosage: INTRAVENOUS
     Route: 042
     Dates: start: 20060110
  4. HEPARINE CALICIQUE            (HEPARIN CALCIUM) [Suspect]
     Indication: AORTIC DISSECTION
     Dosage: 3 KIU, TOTAL DAILY, INTRAVENOUS
     Route: 042
     Dates: start: 20060110
  5. PROTAMINE SULFATE [Suspect]
     Indication: AORTIC DISSECTION
     Dosage: 4 KIU, TOTAL DAILY, INTRAVENOUS
     Route: 042
     Dates: start: 20060110
  6. ETOMIDATE [Concomitant]
  7. ULTIVA [Concomitant]
  8. SUFENTA [Concomitant]
  9. NIMBEX [Concomitant]
  10. SEVORANE [Concomitant]
  11. INSULIN [Concomitant]
  12. RED BLOOD CELLS [Concomitant]
  13. PLATELETS [Concomitant]

REACTIONS (1)
  - URTICARIA GENERALISED [None]
